FAERS Safety Report 21007704 (Version 1)
Quarter: 2022Q2

REPORT INFORMATION
  Report Type: Report from Study
  Country: ZA (occurrence: ZA)
  Receive Date: 20220627
  Receipt Date: 20220627
  Transmission Date: 20220721
  Serious: Yes (Hospitalization)
  Sender: FDA-Public Use
  Company Number: ZA-ABBVIE-22K-143-4443858-00

PATIENT

DRUGS (1)
  1. HUMIRA [Suspect]
     Active Substance: ADALIMUMAB
     Indication: Rheumatoid arthritis
     Route: 058
     Dates: start: 2020

REACTIONS (4)
  - Cardiac failure [Recovered/Resolved]
  - Renal failure [Recovered/Resolved]
  - Skin ulcer [Unknown]
  - Malaise [Unknown]

NARRATIVE: CASE EVENT DATE: 20220301
